FAERS Safety Report 12832261 (Version 1)
Quarter: 2016Q4

REPORT INFORMATION
  Report Type: Spontaneous
  Country: US (occurrence: US)
  Receive Date: 20161010
  Receipt Date: 20161010
  Transmission Date: 20170207
  Serious: No
  Sender: FDA-Public Use
  Company Number: US-JAZZ-2016-US-013140

PATIENT
  Age: 55 Year
  Sex: Female

DRUGS (26)
  1. LINZESS [Concomitant]
     Active Substance: LINACLOTIDE
  2. PROBIOTIC [Concomitant]
     Active Substance: PROBIOTICS NOS
  3. PROZAC [Concomitant]
     Active Substance: FLUOXETINE HYDROCHLORIDE
  4. AMRIX [Concomitant]
     Active Substance: CYCLOBENZAPRINE HYDROCHLORIDE
  5. XYREM [Suspect]
     Active Substance: SODIUM OXYBATE
     Indication: NARCOLEPSY
     Dosage: UNKNOWN DOSE
     Route: 048
     Dates: start: 20160712
  6. FLONASE [Concomitant]
     Active Substance: FLUTICASONE PROPIONATE
  7. PROTONIX [Concomitant]
     Active Substance: PANTOPRAZOLE SODIUM
  8. ROZEREM [Concomitant]
     Active Substance: RAMELTEON
  9. GABAPENTIN. [Concomitant]
     Active Substance: GABAPENTIN
  10. CLONAZEPAM. [Concomitant]
     Active Substance: CLONAZEPAM
  11. NORCO [Concomitant]
     Active Substance: ACETAMINOPHEN\HYDROCODONE BITARTRATE
  12. LATUDA [Concomitant]
     Active Substance: LURASIDONE HYDROCHLORIDE
  13. FLOMAX [Concomitant]
     Active Substance: TAMSULOSIN HYDROCHLORIDE
  14. EFFEXOR [Concomitant]
     Active Substance: VENLAFAXINE HYDROCHLORIDE
  15. CALCIUM + MAGNESIUM + ZINK [Concomitant]
  16. NASACORT [Concomitant]
     Active Substance: TRIAMCINOLONE ACETONIDE
  17. PROAIR HFA [Concomitant]
     Active Substance: ALBUTEROL SULFATE
  18. WESTHROID [Concomitant]
     Active Substance: THYROGLOBULIN
  19. VITAMIN D3 [Concomitant]
     Active Substance: CHOLECALCIFEROL
  20. AZELASTINE [Concomitant]
     Active Substance: AZELASTINE
  21. ASMANEX [Concomitant]
     Active Substance: MOMETASONE FUROATE
  22. FIORICET [Concomitant]
     Active Substance: ACETAMINOPHEN\BUTALBITAL\CAFFEINE
  23. OMEGA 3 [Concomitant]
     Active Substance: OMEGA-3 FATTY ACIDS
  24. ZANTAC [Concomitant]
     Active Substance: RANITIDINE HYDROCHLORIDE
  25. NABUMETONE. [Concomitant]
     Active Substance: NABUMETONE
  26. AMITRIPTYLINE HCL [Concomitant]
     Active Substance: AMITRIPTYLINE

REACTIONS (2)
  - Incorrect dose administered [Unknown]
  - Nausea [Not Recovered/Not Resolved]

NARRATIVE: CASE EVENT DATE: 201607
